FAERS Safety Report 11885655 (Version 1)
Quarter: 2016Q1

REPORT INFORMATION
  Report Type: Spontaneous
  Country: TR (occurrence: TR)
  Receive Date: 20160104
  Receipt Date: 20160104
  Transmission Date: 20160526
  Serious: Yes (Other)
  Sender: FDA-Public Use
  Company Number: TR-JNJFOC-20151225664

PATIENT

DRUGS (2)
  1. INFLIXIMAB, RECOMBINANT [Suspect]
     Active Substance: INFLIXIMAB
     Indication: ANKYLOSING SPONDYLITIS
     Route: 042
  2. INFLIXIMAB, RECOMBINANT [Suspect]
     Active Substance: INFLIXIMAB
     Indication: RHEUMATOID ARTHRITIS
     Route: 042

REACTIONS (9)
  - Upper respiratory tract infection [Unknown]
  - Soft tissue infection [Unknown]
  - Eye infection [Unknown]
  - Disease progression [Unknown]
  - Tooth infection [Unknown]
  - Bronchitis [Unknown]
  - Pneumonia [Unknown]
  - Varicella [Unknown]
  - Urinary tract infection [Unknown]
